FAERS Safety Report 18861061 (Version 1)
Quarter: 2021Q1

REPORT INFORMATION
  Report Type: Spontaneous
  Country: GR (occurrence: GR)
  Receive Date: 20210208
  Receipt Date: 20210208
  Transmission Date: 20210420
  Serious: Yes (Other)
  Sender: FDA-Public Use
  Company Number: NVSC2021GR022778

PATIENT
  Age: 49 Year
  Sex: Female

DRUGS (2)
  1. CALCIORAL [CALCIUM CARBONATE] [Suspect]
     Active Substance: CALCIUM CARBONATE
     Indication: PRODUCT USED FOR UNKNOWN INDICATION
     Dosage: 500 MG, QD
     Route: 065
     Dates: start: 20210113
  2. PARATHYROID HORMONE [Suspect]
     Active Substance: PARATHYROID HORMONE
     Indication: HYPOPARATHYROIDISM
     Dosage: 75 UG, QD (INJECTION PEN, MIXING DEVICE, NEEDLES)
     Route: 050

REACTIONS (5)
  - Device malfunction [Unknown]
  - Dizziness [Unknown]
  - Expired device used [Unknown]
  - Paraesthesia [Unknown]
  - Blood calcium increased [Unknown]
